FAERS Safety Report 4380998-0 (Version None)
Quarter: 2004Q2

REPORT INFORMATION
  Report Type: 
  Country: None (occurrence: None)
  Receive Date: 20040614
  Receipt Date: 20040527
  Transmission Date: 20050107
  Serious: Yes (Congenital Anomaly)
  Sender: FDA-Public Use
  Company Number: WAES 0406USA00041

PATIENT
  Sex: Female

DRUGS (2)
  1. INJ COSMOGEN (DACTINOMYCIN) [Suspect]
     Indication: CHORIOCARCINOMA
     Dosage: INJ
  2. METHOTREXATE [Suspect]
     Indication: CHORIOCARCINOMA

REACTIONS (3)
  - CONGENITAL ANOMALY [None]
  - DRUG EXPOSURE DURING PREGNANCY [None]
  - FALLOT'S TETRALOGY [None]
